FAERS Safety Report 12969518 (Version 3)
Quarter: 2016Q4

REPORT INFORMATION
  Report Type: Spontaneous
  Country: US (occurrence: US)
  Receive Date: 20161123
  Receipt Date: 20161216
  Transmission Date: 20170207
  Serious: Yes (Other)
  Sender: FDA-Public Use
  Company Number: US-ACTELION-A-NJ2016-145887

PATIENT
  Age: 75 Year
  Sex: Male

DRUGS (9)
  1. ATORVASTATIN [Concomitant]
     Active Substance: ATORVASTATIN
  2. OXYBUTYNIN [Concomitant]
     Active Substance: OXYBUTYNIN
  3. TAMSULOSIN [Concomitant]
     Active Substance: TAMSULOSIN
  4. CARVEDILOL. [Concomitant]
     Active Substance: CARVEDILOL
  5. FINASTERIDE. [Concomitant]
     Active Substance: FINASTERIDE
  6. CLOBETASOL [Concomitant]
     Active Substance: CLOBETASOL
  7. OMEPRAZOLE. [Concomitant]
     Active Substance: OMEPRAZOLE
  8. VALCHLOR [Suspect]
     Active Substance: MECHLORETHAMINE
     Indication: MYCOSIS FUNGOIDES
     Dosage: UNK
     Route: 061
     Dates: start: 201605
  9. TRIAMCINOLONE [Concomitant]
     Active Substance: TRIAMCINOLONE

REACTIONS (4)
  - Therapy non-responder [Not Recovered/Not Resolved]
  - Skin neoplasm excision [Not Recovered/Not Resolved]
  - Skin reaction [Not Recovered/Not Resolved]
  - Erythema [Not Recovered/Not Resolved]
